FAERS Safety Report 14596905 (Version 1)
Quarter: 2018Q1

REPORT INFORMATION
  Report Type: Spontaneous
  Country: GB (occurrence: GB)
  Receive Date: 20180305
  Receipt Date: 20180305
  Transmission Date: 20180509
  Serious: Yes (Other)
  Sender: FDA-Public Use
  Company Number: GB-AMGEN-GBRSP2018026988

PATIENT
  Age: 59 Year
  Sex: Male
  Weight: 85.6 kg

DRUGS (2)
  1. INFLUENZA VIRUS [Concomitant]
     Active Substance: INFLUENZA VIRUS VACCINE
     Indication: INFLUENZA IMMUNISATION
  2. REPATHA [Suspect]
     Active Substance: EVOLOCUMAB
     Indication: ANGIOPATHY
     Dosage: 140 MG, UNK
     Route: 058
     Dates: start: 20171002, end: 20171114

REACTIONS (4)
  - Influenza like illness [Not Recovered/Not Resolved]
  - Rhinorrhoea [Not Recovered/Not Resolved]
  - Pruritus [Not Recovered/Not Resolved]
  - Myalgia [Not Recovered/Not Resolved]

NARRATIVE: CASE EVENT DATE: 20171023
